FAERS Safety Report 9168784 (Version 2)
Quarter: 2013Q1

REPORT INFORMATION
  Report Type: Spontaneous
  Country: JP (occurrence: None)
  Receive Date: 20130308
  Receipt Date: 20130308
  Transmission Date: 20140127
  Serious: Yes (Life-Threatening)
  Sender: FDA-Public Use
  Company Number: 1611093

PATIENT
  Age: 51 Year
  Sex: Male
  Weight: 57 kg

DRUGS (2)
  1. DEXMEDETOMIDINE HYDROCHLORIDE [Suspect]
     Indication: SEDATIVE THERAPY
     Dosage: 3V, UNKNOWN, INTRAVENOUS (NOT OTHERWISE SPECIFIED)
     Route: 042
     Dates: start: 20120716, end: 20120716
  2. MIDAZOLAM [Concomitant]

REACTIONS (1)
  - Shock [None]
